FAERS Safety Report 16509271 (Version 1)
Quarter: 2019Q3

REPORT INFORMATION
  Report Type: Spontaneous
  Country: DE (occurrence: DE)
  Receive Date: 20190702
  Receipt Date: 20190702
  Transmission Date: 20191004
  Serious: Yes (Other)
  Sender: FDA-Public Use
  Company Number: DE-ACCORD-136063

PATIENT
  Age: 47 Year
  Sex: Female
  Weight: 65 kg

DRUGS (12)
  1. XYLOMETAZOLINE [Concomitant]
     Active Substance: XYLOMETAZOLINE
     Indication: NASAL CONGESTION
     Route: 045
  2. L-THYROXINE [Concomitant]
     Active Substance: LEVOTHYROXINE
     Indication: HYPOTHYROIDISM
     Dosage: 100 MCG/D (BIS 50 MCG/D)
     Route: 048
     Dates: start: 20180310, end: 20181023
  3. PREDNISOLONE. [Concomitant]
     Active Substance: PREDNISOLONE
     Indication: INFERTILITY FEMALE
     Dosage: 15 MG/D (BIS 5)
     Route: 048
     Dates: start: 20180324, end: 20180424
  4. CLEXANE [Concomitant]
     Active Substance: ENOXAPARIN SODIUM
     Indication: PROPHYLAXIS OF ABORTION
     Route: 058
     Dates: start: 20180328, end: 20180421
  5. VAXIGRIP [Concomitant]
     Active Substance: INFLUENZA VIRUS VACCINE
     Indication: IMMUNISATION
     Route: 030
  6. FAMENITA [Concomitant]
     Active Substance: PROGESTERONE
     Indication: PROPHYLAXIS OF ABORTION
     Dosage: 600 MG/D (3X200)
     Route: 067
  7. ACTRAPID [Concomitant]
     Active Substance: INSULIN HUMAN
     Indication: GESTATIONAL DIABETES
     Dosage: STRENGTH:  100 I.U./ML
     Route: 058
  8. QUETIAPINE. [Suspect]
     Active Substance: QUETIAPINE
     Indication: DEPRESSION
     Dosage: 225 MG MG/D (BIS 150 MG/D, 100-150 50-75
     Route: 048
     Dates: start: 20180310, end: 20181211
  9. COLECALCIFEROL [Concomitant]
     Active Substance: CHOLECALCIFEROL
     Indication: VITAMIN D DEFICIENCY
     Dosage: 20000 I.E./WK
     Route: 048
  10. PROLUTEX [Concomitant]
     Active Substance: PROGESTERONE
     Indication: PROPHYLAXIS OF ABORTION
     Dosage: STRENGTH: 25 MG
     Route: 058
     Dates: start: 20180413, end: 20180419
  11. PROLUTON [Concomitant]
     Active Substance: HYDROXYPROGESTERONE CAPROATE
     Indication: PROPHYLAXIS OF ABORTION
     Dosage: 500 MG/D (ALLE 3 TAGE)
     Route: 030
     Dates: start: 20180328, end: 20180419
  12. ASPIRIN. [Concomitant]
     Active Substance: ASPIRIN
     Indication: PROPHYLAXIS
     Dosage: 100 MG/D
     Route: 048

REACTIONS (3)
  - Polyhydramnios [Recovered/Resolved]
  - Exposure during pregnancy [Unknown]
  - Gestational diabetes [Recovered/Resolved]
